FAERS Safety Report 12066798 (Version 1)
Quarter: 2016Q1

REPORT INFORMATION
  Report Type: Spontaneous
  Country: US (occurrence: None)
  Receive Date: 20160210
  Receipt Date: 20160210
  Transmission Date: 20160526
  Serious: Yes (Hospitalization)
  Sender: FDA-Public Use
  Company Number: None

PATIENT
  Age: 23 Year
  Sex: Female
  Weight: 80.29 kg

DRUGS (4)
  1. IBUPROFEN. [Concomitant]
     Active Substance: IBUPROFEN
  2. TRISPRINTEC [Concomitant]
     Active Substance: ETHINYL ESTRADIOL\NORGESTIMATE
  3. AZITHROMYCIN 250 MG TEVA PHARMACEUTICAL USA, INC [Suspect]
     Active Substance: AZITHROMYCIN MONOHYDRATE
     Indication: PHARYNGITIS
     Dosage: 6  2 FIRST DAY, 1DAILY  TAKEN BY MOUTH
     Route: 048
     Dates: start: 20160208, end: 20160208
  4. PROAIR HFA [Concomitant]
     Active Substance: ALBUTEROL SULFATE

REACTIONS (5)
  - Diarrhoea [None]
  - Dyspnoea [None]
  - Abdominal pain lower [None]
  - Headache [None]
  - Abdominal pain upper [None]

NARRATIVE: CASE EVENT DATE: 20160208
